FAERS Safety Report 22146777 (Version 1)
Quarter: 2023Q1

REPORT INFORMATION
  Report Type: Spontaneous
  Country: VN (occurrence: None)
  Receive Date: 20230328
  Receipt Date: 20230328
  Transmission Date: 20230417
  Serious: Yes (Other)
  Sender: FDA-Public Use
  Company Number: VN-ROCHE-3317666

PATIENT
  Age: 33 Year

DRUGS (24)
  1. RITUXIMAB [Suspect]
     Active Substance: RITUXIMAB
     Indication: Diffuse large B-cell lymphoma
     Dosage: 375MG/M2 D0
     Route: 065
  2. DOXORUBICIN [Suspect]
     Active Substance: DOXORUBICIN
     Indication: Diffuse large B-cell lymphoma
     Dosage: 10MG/M2, D1 - 4
     Route: 065
  3. DOXORUBICIN [Suspect]
     Active Substance: DOXORUBICIN
     Dosage: DAY 1-4 6.4 MG/M2/ DAY (DOSE LEVEL 2- 60 PERCENT)
     Route: 065
  4. DOXORUBICIN [Suspect]
     Active Substance: DOXORUBICIN
     Dosage: DAY 1-4 8 MG/M2/ DAY (DOSE LEVEL 1- 80 PERCENT)
     Route: 065
  5. DOXORUBICIN [Suspect]
     Active Substance: DOXORUBICIN
     Dosage: DAY 1-4 10 MG/M2/ DAY (DOSE LEVEL 0, CYCLE 1, 100 PERCENT)
     Route: 065
  6. DOXORUBICIN [Suspect]
     Active Substance: DOXORUBICIN
     Dosage: DAY 1-4 12 MG/M2/ DAY (DOSE LEVEL + 1, 120 PERCENT) (CYCLE 2)
     Route: 065
  7. DOXORUBICIN [Suspect]
     Active Substance: DOXORUBICIN
     Dosage: DAY 1-4 14.4 MG/M2/ DAY (DOSE LEVEL + 1, 144 PERCENT) (FROM CYCLE 3)
     Route: 065
  8. VINCRISTINE [Suspect]
     Active Substance: VINCRISTINE
     Indication: Diffuse large B-cell lymphoma
     Dosage: 0.4MG/M2, D1 - 4
     Route: 065
  9. ETOPOSIDE [Suspect]
     Active Substance: ETOPOSIDE
     Indication: Diffuse large B-cell lymphoma
     Dosage: 50MG/M2, D1 - 4
     Route: 065
  10. ETOPOSIDE [Suspect]
     Active Substance: ETOPOSIDE
     Dosage: DAY 1-4 32MG/M2/DAY (64 PERCENT) (DOSE LEVEL 2)
     Route: 065
  11. ETOPOSIDE [Suspect]
     Active Substance: ETOPOSIDE
     Dosage: DAY 1-4 40MG/M2/DAY  (DOSE LEVEL 1) (80 PERCENT)
     Route: 065
  12. ETOPOSIDE [Suspect]
     Active Substance: ETOPOSIDE
     Dosage: DAY 1-4 50MG/M2/DAY  (DOSE LEVEL 0, CYCLE 1) (100 PERCENT)
     Route: 065
  13. ETOPOSIDE [Suspect]
     Active Substance: ETOPOSIDE
     Dosage: DAY 1-4 60 MG/M2/DAY  (DOSE LEVEL +1) (120 PERCENT) (CYCLE 2)
     Route: 065
  14. ETOPOSIDE [Suspect]
     Active Substance: ETOPOSIDE
     Dosage: DAY 1-4 72 MG/M2/DAY  (DOSE LEVEL +2) (144 PERCENT) (CYCLE 3)
     Route: 065
  15. CYCLOPHOSPHAMIDE [Suspect]
     Active Substance: CYCLOPHOSPHAMIDE
     Indication: Diffuse large B-cell lymphoma
     Dosage: 750MG/M2, D5
     Route: 065
  16. CYCLOPHOSPHAMIDE [Suspect]
     Active Substance: CYCLOPHOSPHAMIDE
     Dosage: DAY 5, 480MG/M2, DOSE LEVEL 2, 64 PERCENT
     Route: 065
  17. CYCLOPHOSPHAMIDE [Suspect]
     Active Substance: CYCLOPHOSPHAMIDE
     Dosage: DAY 5, 600MG/M2, DOSE LEVEL 1, 80 PERCENT
     Route: 065
  18. CYCLOPHOSPHAMIDE [Suspect]
     Active Substance: CYCLOPHOSPHAMIDE
     Dosage: DAY 5, 750MG/M2, DOSE LEVEL 0- I.E. CYCLE 1, 100 PERCENT
     Route: 065
  19. CYCLOPHOSPHAMIDE [Suspect]
     Active Substance: CYCLOPHOSPHAMIDE
     Dosage: DAY 5, 900 MG/M2, DOSE LEVEL  +1 - I.E. CYCLE 2, 120 PERCENT
     Route: 065
  20. CYCLOPHOSPHAMIDE [Suspect]
     Active Substance: CYCLOPHOSPHAMIDE
     Dosage: DAY 5, 1080 MG/M2, DOSE LEVEL  + 2, 144 PERCENT- FROM CYCLE 3
     Route: 065
  21. METHYLPREDNISOLONE [Suspect]
     Active Substance: METHYLPREDNISOLONE
     Indication: Diffuse large B-cell lymphoma
     Dosage: 80MG/M2, D1 - 5
     Route: 065
  22. CISPLATIN [Suspect]
     Active Substance: CISPLATIN
     Indication: Diffuse large B-cell lymphoma
     Dosage: 100MG/M2, D1, 24 HOUR IV INFUSION
     Route: 042
  23. CYTARABINE [Suspect]
     Active Substance: CYTARABINE
     Indication: Diffuse large B-cell lymphoma
     Dosage: 2000MG/M2 X TWICE A DAY, D2, IV INFUSION
     Route: 042
  24. DEXAMETHASONE [Suspect]
     Active Substance: DEXAMETHASONE
     Indication: Diffuse large B-cell lymphoma
     Dosage: 40MG/ D, D1 - 4
     Route: 065

REACTIONS (4)
  - Exudative retinopathy [Unknown]
  - Neutrophil count decreased [Unknown]
  - Disease progression [Unknown]
  - Off label use [Unknown]
